FAERS Safety Report 7628731-0 (Version None)
Quarter: 2011Q3

REPORT INFORMATION
  Report Type: 
  Country: None (occurrence: None)
  Receive Date: 20110721
  Receipt Date: 20110721
  Transmission Date: 20111222
  Serious: Yes (Hospitalization)
  Sender: FDA-Public Use
  Company Number: None

PATIENT
  Age: 66 Year
  Sex: Male
  Weight: 78.18 kg

DRUGS (1)
  1. DIAZEPAM [Suspect]
     Dosage: 5 MG ONCE IV
     Route: 042
     Dates: start: 20080721, end: 20080721

REACTIONS (1)
  - APNOEA [None]
